APPROVED DRUG PRODUCT: SAPROPTERIN DIHYDROCHLORIDE
Active Ingredient: SAPROPTERIN DIHYDROCHLORIDE
Strength: 100MG/PACKET
Dosage Form/Route: POWDER;ORAL
Application: A219511 | Product #001 | TE Code: AB
Applicant: MICRO LABS LTD
Approved: Jan 8, 2026 | RLD: No | RS: No | Type: RX